FAERS Safety Report 16931880 (Version 1)
Quarter: 2019Q4

REPORT INFORMATION
  Report Type: Spontaneous
  Country: US (occurrence: US)
  Receive Date: 20191017
  Receipt Date: 20191017
  Transmission Date: 20200122
  Serious: Yes (Other)
  Sender: FDA-Public Use
  Company Number: US-GLAXOSMITHKLINE-US2019184317

PATIENT
  Sex: Female

DRUGS (7)
  1. ADVAIR DISKUS [Suspect]
     Active Substance: FLUTICASONE PROPIONATE\SALMETEROL XINAFOATE
     Indication: PRODUCT USED FOR UNKNOWN INDICATION
     Dosage: 250/50 MCG, UNK
     Route: 065
  2. ADVAIR DISKUS [Suspect]
     Active Substance: FLUTICASONE PROPIONATE\SALMETEROL XINAFOATE
     Dosage: 100/50 MCG, UNK
     Route: 065
     Dates: start: 201806, end: 20191005
  3. ADVAIR HFA [Suspect]
     Active Substance: FLUTICASONE PROPIONATE\SALMETEROL XINAFOATE
     Indication: PRODUCT USED FOR UNKNOWN INDICATION
     Dosage: 1 PUFF(S), BID
     Route: 065
     Dates: start: 20191005
  4. ALBUTEROL SULFATE. [Suspect]
     Active Substance: ALBUTEROL SULFATE
     Indication: PRODUCT USED FOR UNKNOWN INDICATION
     Dosage: UNK
     Route: 065
     Dates: start: 20191005
  5. VENTOLIN HFA [Suspect]
     Active Substance: ALBUTEROL SULFATE
     Indication: PRODUCT USED FOR UNKNOWN INDICATION
     Dosage: UNK
     Route: 065
  6. QVAR [Suspect]
     Active Substance: BECLOMETHASONE DIPROPIONATE
     Indication: PRODUCT USED FOR UNKNOWN INDICATION
     Dosage: UNK
     Route: 065
     Dates: start: 20191005
  7. METOPROLOL. [Concomitant]
     Active Substance: METOPROLOL
     Indication: HEART RATE INCREASED
     Dosage: UNK
     Route: 065

REACTIONS (26)
  - Palpitations [Unknown]
  - Dry eye [Unknown]
  - Wrong technique in device usage process [Unknown]
  - Dysphonia [Unknown]
  - Heart rate increased [Unknown]
  - Tooth fracture [Unknown]
  - Sinusitis [Unknown]
  - Platelet count increased [Unknown]
  - Tooth infection [Unknown]
  - Hyperkalaemia [Unknown]
  - Essential thrombocythaemia [Not Recovered/Not Resolved]
  - Bronchospasm [Unknown]
  - Irritability [Unknown]
  - Ear discomfort [Unknown]
  - Oral pain [Unknown]
  - Immune thrombocytopenic purpura [Unknown]
  - Vision blurred [Unknown]
  - Anxiety [Unknown]
  - Somnolence [Unknown]
  - Drug ineffective [Unknown]
  - Agitation [Unknown]
  - Ear pain [Unknown]
  - Nervousness [Unknown]
  - Tinnitus [Unknown]
  - Oropharyngeal pain [Unknown]
  - Pain [Not Recovered/Not Resolved]

NARRATIVE: CASE EVENT DATE: 1999
